FAERS Safety Report 4375979-7 (Version None)
Quarter: 2004Q2

REPORT INFORMATION
  Report Type: 
  Country: None (occurrence: None)
  Receive Date: 20040609
  Receipt Date: 20040609
  Transmission Date: 20050107
  Serious: Yes (Hospitalization)
  Sender: FDA-Public Use
  Company Number: None

PATIENT
  Sex: Male

DRUGS (5)
  1. GEMCITABINE [Suspect]
     Indication: GASTROINTESTINAL NEOPLASM
     Dosage: 1200 MG/M2 EVERY WEEK IV
     Route: 042
     Dates: start: 20040217, end: 20040601
  2. IRINOTECAN [Suspect]
     Indication: GASTROINTESTINAL NEOPLASM
     Dosage: 100 MG/M2 EVERY WEEK IV
     Route: 042
     Dates: start: 20040217, end: 20040601
  3. ZOFRAN [Concomitant]
  4. DECADRON [Concomitant]
  5. KYTRIL [Concomitant]

REACTIONS (3)
  - DEHYDRATION [None]
  - DIARRHOEA [None]
  - GASTROINTESTINAL HAEMORRHAGE [None]
